FAERS Safety Report 6267223-0 (Version None)
Quarter: 2009Q3

REPORT INFORMATION
  Report Type: 
  Country: None (occurrence: None)
  Receive Date: 20090714
  Receipt Date: 20090709
  Transmission Date: 20100115
  Serious: Yes (Hospitalization)
  Sender: FDA-Public Use
  Company Number: DE-ROXANE LABORATORIES, INC.-2009-RO-00672RO

PATIENT
  Age: 3 Day
  Sex: Male
  Weight: 3 kg

DRUGS (2)
  1. LAMOTRIGINE [Suspect]
     Indication: DRUG EXPOSURE DURING PREGNANCY
     Route: 064
  2. PHENOBARBITAL [Concomitant]
     Indication: GRAND MAL CONVULSION

REACTIONS (3)
  - DRUG WITHDRAWAL SYNDROME [None]
  - GRAND MAL CONVULSION [None]
  - HYPONATRAEMIA [None]
